FAERS Safety Report 11193997 (Version 3)
Quarter: 2015Q2

REPORT INFORMATION
  Report Type: Spontaneous
  Country: PL (occurrence: PL)
  Receive Date: 20150616
  Receipt Date: 20150626
  Transmission Date: 20150821
  Serious: Yes (Hospitalization, Other)
  Sender: FDA-Public Use
  Company Number: PL-009507513-1506POL003002

PATIENT

DRUGS (3)
  1. RIBAVIRIN. [Suspect]
     Active Substance: RIBAVIRIN
     Route: 048
  2. BOCEPREVIR [Suspect]
     Active Substance: BOCEPREVIR
     Indication: HEPATITIS C
     Route: 048
  3. PEGINTERFERON ALFA-2B [Suspect]
     Active Substance: PEGINTERFERON ALFA-2B

REACTIONS (9)
  - Neuropsychiatric syndrome [Unknown]
  - Drug ineffective [Unknown]
  - Thrombocytopenia [Unknown]
  - Sepsis [Unknown]
  - Adverse event [Unknown]
  - Skin lesion [Unknown]
  - Neutropenia [Unknown]
  - Liver disorder [Unknown]
  - Anaemia [Unknown]

NARRATIVE: CASE EVENT DATE: 2015
